FAERS Safety Report 6182621-1 (Version None)
Quarter: 2009Q2

REPORT INFORMATION
  Report Type: 
  Country: None (occurrence: None)
  Receive Date: 20090507
  Receipt Date: 20090505
  Transmission Date: 20091009
  Serious: Yes (Death)
  Sender: FDA-Public Use
  Company Number: PHHY2009BR17085

PATIENT
  Age: 93 Year
  Sex: Male

DRUGS (1)
  1. EXELON [Suspect]

REACTIONS (1)
  - DEATH [None]
